FAERS Safety Report 4689418-X (Version None)
Quarter: 2005Q2

REPORT INFORMATION
  Report Type: 
  Country: None (occurrence: None)
  Receive Date: 20050608
  Receipt Date: 20050418
  Transmission Date: 20051028
  Serious: No
  Sender: FDA-Public Use
  Company Number: 2005-BP-06423BP

PATIENT
  Sex: Female

DRUGS (2)
  1. SPIRIVA [Suspect]
     Indication: CHRONIC OBSTRUCTIVE PULMONARY DISEASE
     Dosage: 18 MCG (18 MCG), IH
     Route: 055
     Dates: start: 20050301
  2. ADVAIR DISKUS 100/50 [Concomitant]

REACTIONS (6)
  - BOWEL MOVEMENT IRREGULARITY [None]
  - COUGH [None]
  - CYSTITIS [None]
  - DRY MOUTH [None]
  - DYSURIA [None]
  - JOINT SWELLING [None]
